FAERS Safety Report 9466048 (Version 1)
Quarter: 2013Q3

REPORT INFORMATION
  Report Type: Spontaneous
  Country: US (occurrence: None)
  Receive Date: 20130816
  Receipt Date: 20130816
  Transmission Date: 20140515
  Serious: Yes (Disabling)
  Sender: FDA-Public Use
  Company Number: None

PATIENT
  Age: 50 Year
  Sex: Female
  Weight: 90.72 kg

DRUGS (1)
  1. LEVOFLOXACIN [Suspect]
     Indication: BRONCHITIS
     Dosage: 1 PILL  ONCE DAILY  TAKEN BY MOUTH
     Route: 048
     Dates: start: 20130422, end: 20130424

REACTIONS (7)
  - Back pain [None]
  - Neck pain [None]
  - Pain in extremity [None]
  - Impaired work ability [None]
  - Gait disturbance [None]
  - Activities of daily living impaired [None]
  - Tendon disorder [None]
